FAERS Safety Report 23310381 (Version 1)
Quarter: 2023Q4

REPORT INFORMATION
  Report Type: Spontaneous
  Country: EC (occurrence: EC)
  Receive Date: 20231218
  Receipt Date: 20231218
  Transmission Date: 20240110
  Serious: Yes (Other)
  Sender: FDA-Public Use
  Company Number: EC-GLAXOSMITHKLINE-EC2023AMR174395

PATIENT

DRUGS (2)
  1. LAMOTRIGINE [Suspect]
     Active Substance: LAMOTRIGINE
     Indication: Epilepsy
     Dosage: 25 MG, 1D
     Route: 048
  2. CARBAMAZEPINE [Concomitant]
     Active Substance: CARBAMAZEPINE
     Indication: Epilepsy
     Dosage: 300 MG, BID
     Route: 048

REACTIONS (19)
  - Drug reaction with eosinophilia and systemic symptoms [Recovered/Resolved]
  - Skin reaction [Recovered/Resolved]
  - Pruritus [Recovered/Resolved]
  - Skin exfoliation [Recovered/Resolved]
  - Hepatic failure [Recovered/Resolved]
  - Pyrexia [Recovered/Resolved]
  - General physical health deterioration [Recovered/Resolved]
  - Erythema [Recovered/Resolved]
  - Macule [Recovered/Resolved]
  - Periorbital oedema [Recovered/Resolved]
  - Oropharyngeal discomfort [Recovered/Resolved]
  - Pharyngeal erythema [Recovered/Resolved]
  - Oropharyngeal oedema [Recovered/Resolved]
  - Lymphadenopathy [Recovered/Resolved]
  - Abdominal pain [Recovered/Resolved]
  - Dermatitis exfoliative generalised [Recovered/Resolved]
  - Eosinophilia [Recovered/Resolved]
  - Liver injury [Recovered/Resolved]
  - Rash [Recovered/Resolved]
